FAERS Safety Report 8996852 (Version 1)
Quarter: 2012Q4

REPORT INFORMATION
  Report Type: Spontaneous
  Country: GB (occurrence: None)
  Receive Date: 20121221
  Receipt Date: 20121221
  Transmission Date: 20130627
  Serious: Yes (Death, Congenital Anomaly)
  Sender: FDA-Public Use
  Company Number: 2012-22285

PATIENT

DRUGS (1)
  1. RAMIPRIL [Suspect]
     Indication: HYPERTENSION
     Route: 064

REACTIONS (4)
  - Foetal death [None]
  - Placental insufficiency [None]
  - Foetal growth restriction [None]
  - Maternal drugs affecting foetus [None]
